FAERS Safety Report 5870006-4 (Version None)
Quarter: 2008Q3

REPORT INFORMATION
  Report Type: 
  Country: None (occurrence: None)
  Receive Date: 20080904
  Receipt Date: 20080613
  Transmission Date: 20090109
  Serious: No
  Sender: FDA-Public Use
  Company Number: US-BAYER-200826504NA

PATIENT
  Age: 51 Year
  Sex: Female
  Weight: 62 kg

DRUGS (1)
  1. MIRENA [Suspect]
     Indication: VAGINAL HAEMORRHAGE
     Route: 015
     Dates: start: 20021001

REACTIONS (5)
  - ABDOMINAL PAIN LOWER [None]
  - ACNE [None]
  - BACK PAIN [None]
  - EMOTIONAL DISORDER [None]
  - NO ADVERSE EVENT [None]
